FAERS Safety Report 6103537-2 (Version None)
Quarter: 2009Q1

REPORT INFORMATION
  Report Type: 
  Country: None (occurrence: None)
  Receive Date: 20090302
  Receipt Date: 20090212
  Transmission Date: 20090719
  Serious: Yes (Hospitalization)
  Sender: FDA-Public Use
  Company Number: DSA_31324_2008

PATIENT
  Sex: Female

DRUGS (10)
  1. DILTIAZEM [Suspect]
     Indication: DRUG USE FOR UNKNOWN INDICATION
     Dosage: 300 MG QD, ORAL
     Route: 048
     Dates: start: 20071107, end: 20071117
  2. FLUDEX /00340101/ (FLUDEX - INDAPAMIDE) [Suspect]
     Indication: DRUG USE FOR UNKNOWN INDICATION
     Dosage: 1.5 MG QD; ORAL
     Route: 048
     Dates: start: 20071107, end: 20071117
  3. LASIX [Concomitant]
  4. AMLOR [Concomitant]
  5. HYPERIUM [Concomitant]
  6. HEMI-DAONIL [Concomitant]
  7. DETENSIEL [Concomitant]
  8. PLAVIX [Concomitant]
  9. CRESTOR [Concomitant]
  10. ZYLORIC [Concomitant]

REACTIONS (10)
  - BACTERIA URINE IDENTIFIED [None]
  - BRAIN NATRIURETIC PEPTIDE INCREASED [None]
  - CUTANEOUS VASCULITIS [None]
  - DYSPNOEA [None]
  - EOSINOPHILIA [None]
  - ESCHERICHIA INFECTION [None]
  - LUNG DISORDER [None]
  - PRURITUS [None]
  - PYREXIA [None]
  - TOXIC SKIN ERUPTION [None]
